FAERS Safety Report 5068991-6 (Version None)
Quarter: 2006Q3

REPORT INFORMATION
  Report Type: 
  Country: None (occurrence: None)
  Receive Date: 20060802
  Receipt Date: 20060728
  Transmission Date: 20061208
  Serious: Yes (Death, Hospitalization)
  Sender: FDA-Public Use
  Company Number: CA-BOEHRINGER INGELHEIM PHARMACEUTICALS, INC.-2006-CN-00384CN

PATIENT
  Age: 73 Year
  Sex: Female

DRUGS (2)
  1. ATROVENT [Suspect]
  2. SALBUTAMOL SULFATE [Concomitant]

REACTIONS (15)
  - ABDOMINAL DISTENSION [None]
  - ABDOMINAL PAIN LOWER [None]
  - ABNORMAL FAECES [None]
  - ACUTE PRERENAL FAILURE [None]
  - BLOOD AMYLASE INCREASED [None]
  - CARDIAC ARREST [None]
  - CHILLS [None]
  - CHRONIC OBSTRUCTIVE PULMONARY DISEASE [None]
  - CLOSTRIDIUM DIFFICILE COLITIS [None]
  - DIARRHOEA [None]
  - MEGACOLON [None]
  - MELAENA [None]
  - NAUSEA [None]
  - OBSTRUCTIVE AIRWAYS DISORDER [None]
  - PELVIC PAIN [None]
